FAERS Safety Report 16098447 (Version 2)
Quarter: 2019Q2

REPORT INFORMATION
  Report Type: Spontaneous
  Country: DE (occurrence: DE)
  Receive Date: 20190321
  Receipt Date: 20190412
  Transmission Date: 20190711
  Serious: Yes (Hospitalization, Other)
  Sender: FDA-Public Use
  Company Number: DE-ALEXION-A201904260

PATIENT
  Age: 22 Year
  Sex: Female

DRUGS (3)
  1. SOLIRIS [Suspect]
     Active Substance: ECULIZUMAB
     Indication: PAROXYSMAL NOCTURNAL HAEMOGLOBINURIA
     Dosage: UNK, Q2W
     Route: 065
  2. MENINGOCOCCAL POLYSACCHARIDE VACCINE A NOS [Suspect]
     Active Substance: MENINGOCOCCAL POLYSACCHARIDE VACCINE A\NEISSERIA MENINGITIDIS GROUP A CAPSULAR POLYSACCHARIDE ANTIGEN
     Indication: PROPHYLAXIS
     Route: 065
  3. MENVEO [Suspect]
     Active Substance: NEISSERIA MENINGITIDIS GROUP A CAPSULAR OLIGOSACCHARIDE DIPHTHERIA CRM197 PROTEIN CONJUGATE ANTIGEN\NEISSERIA MENINGITIDIS GROUP C CAPSULAR OLIGOSACCHARIDE DIPHTHERIA CRM197 PROTEIN CONJUGATE ANTIGEN\NEISSERIA MENINGITIDIS GROUP W-135 CAPSULAR OLIGOSACCHARIDE DIPHTHERIA CRM197 PROTEIN CONJUGATE ANTI
     Indication: PROPHYLAXIS
     Route: 065

REACTIONS (22)
  - Abdominal pain [Unknown]
  - Pancytopenia [Unknown]
  - C-reactive protein increased [Unknown]
  - Hypotension [Unknown]
  - Pyrexia [Unknown]
  - Systemic inflammatory response syndrome [Unknown]
  - Blood lactic acid increased [Unknown]
  - Granulocyte count decreased [Unknown]
  - Headache [Unknown]
  - Meningococcal sepsis [Unknown]
  - Tachycardia [Unknown]
  - Asthenia [Unknown]
  - Neck pain [Unknown]
  - Vaccination failure [Unknown]
  - Neutropenia [Unknown]
  - Haemolysis [Unknown]
  - Disseminated intravascular coagulation [Unknown]
  - Chromaturia [Unknown]
  - Monocyte count decreased [Unknown]
  - Vomiting [Unknown]
  - Infection [Unknown]
  - Arthralgia [Unknown]
